FAERS Safety Report 7126559-1 (Version None)
Quarter: 2010Q4

REPORT INFORMATION
  Report Type: 
  Country: None (occurrence: None)
  Receive Date: 20101129
  Receipt Date: 20101125
  Transmission Date: 20110411
  Serious: Yes (Other)
  Sender: FDA-Public Use
  Company Number: JP-PFIZER INC-2010136210

PATIENT
  Age: 60 Year
  Sex: Male
  Weight: 50 kg

DRUGS (4)
  1. SUNITINIB MALATE [Suspect]
     Indication: METASTATIC RENAL CELL CARCINOMA
     Dosage: 25 MG, 2X/DAY
     Route: 048
     Dates: start: 20090728, end: 20090807
  2. NORVASC [Concomitant]
     Indication: PROPHYLAXIS
     Dosage: 2.5MG 2 TABLETS/DAY TWICE DAILY
     Route: 048
     Dates: start: 20090728
  3. CODEINE PHOSPHATE [Concomitant]
     Dosage: 0.2 MG, 4X/DAY
     Route: 048
     Dates: start: 20090629
  4. NAIXAN [Concomitant]
     Dosage: 100MG 2 TABLETS/DAY TWICE DAILY
     Route: 048
     Dates: start: 20090709, end: 20090804

REACTIONS (1)
  - HYPOCHLORAEMIA [None]
